FAERS Safety Report 11133283 (Version 1)
Quarter: 2015Q2

REPORT INFORMATION
  Report Type: Spontaneous
  Country: ES (occurrence: ES)
  Receive Date: 20150522
  Receipt Date: 20150522
  Transmission Date: 20150821
  Serious: Yes (Hospitalization)
  Sender: FDA-Public Use
  Company Number: PHHY2015ES061864

PATIENT
  Age: 38 Year
  Sex: Male

DRUGS (3)
  1. TRILEPTAL [Suspect]
     Active Substance: OXCARBAZEPINE
     Indication: AUTISM
     Dosage: 300 MG, QD
     Route: 048
     Dates: start: 20140129
  2. LORAZEPAM. [Suspect]
     Active Substance: LORAZEPAM
     Indication: AGITATION
     Route: 048
     Dates: start: 20140129
  3. NEMACTIL [Suspect]
     Active Substance: PERICIAZINE
     Indication: AUTISM
     Dosage: 10 MG, UNK
     Route: 048
     Dates: start: 20140319

REACTIONS (1)
  - Inappropriate antidiuretic hormone secretion [Recovered/Resolved]

NARRATIVE: CASE EVENT DATE: 20140521
